FAERS Safety Report 14322110 (Version 1)
Quarter: 2017Q4

REPORT INFORMATION
  Report Type: Report from Study
  Country: DE (occurrence: DE)
  Receive Date: 20171225
  Receipt Date: 20171225
  Transmission Date: 20180321
  Serious: Yes (Hospitalization)
  Sender: FDA-Public Use
  Company Number: DE-ROCHE-1763814

PATIENT
  Age: 70 Year
  Sex: Male
  Weight: 93 kg

DRUGS (11)
  1. OXALIPLATIN. [Suspect]
     Active Substance: OXALIPLATIN
     Indication: COLORECTAL CANCER METASTATIC
     Dosage: DOSE OF LAST STUDY DRUG ADMINISTERED: 400?DATE OF MOST RECENT DOSE OF STUDY DRUG PRIOR TO AE ONSET:
     Route: 042
     Dates: start: 20160405
  2. INNOHEP [Concomitant]
     Active Substance: TINZAPARIN SODIUM
     Route: 065
  3. BEVACIZUMAB. [Suspect]
     Active Substance: BEVACIZUMAB
     Indication: COLORECTAL CANCER METASTATIC
     Dosage: DOSE OF LAST STUDY DRUG ADMINISTERED: 465 MG?DATE OF MOST RECENT DOSE OF STUDY DRUG PRIOR TO AE ONSE
     Route: 042
     Dates: start: 20160405
  4. FOLINIC ACID [Suspect]
     Active Substance: LEUCOVORIN
     Indication: COLORECTAL CANCER METASTATIC
     Dosage: DOSE OF LAST STUDY DRUG ADMINISTERED: 400?DATE OF MOST RECENT DOSE OF STUDY DRUG PRIOR TO AE ONSET:
     Route: 042
     Dates: start: 20160405
  5. 5-FLUOROURACIL [Suspect]
     Active Substance: FLUOROURACIL
     Indication: COLORECTAL CANCER METASTATIC
     Dosage: DOSE OF LAST STUDY DRUG ADMINISTERED: 400?DATE OF MOST RECENT DOSE OF STUDY DRUG PRIOR TO AE ONSET:
     Route: 040
     Dates: start: 20160405
  6. 5-FLUOROURACIL [Suspect]
     Active Substance: FLUOROURACIL
     Route: 041
  7. ATORVASTATIN [Concomitant]
     Active Substance: ATORVASTATIN
     Route: 065
  8. BISOPROLOL [Concomitant]
     Active Substance: BISOPROLOL
     Route: 065
  9. LANTUS [Concomitant]
     Active Substance: INSULIN GLARGINE
     Route: 065
  10. MCP [Concomitant]
     Active Substance: METOCLOPRAMIDE HYDROCHLORIDE
     Indication: HICCUPS
     Route: 065
     Dates: start: 20160502
  11. NOVORAPID [Concomitant]
     Active Substance: INSULIN ASPART
     Route: 065

REACTIONS (1)
  - Gastrointestinal anastomotic leak [Recovered/Resolved]

NARRATIVE: CASE EVENT DATE: 20160524
